FAERS Safety Report 9396254 (Version 3)
Quarter: 2013Q3

REPORT INFORMATION
  Report Type: Report from Study
  Country: US (occurrence: US)
  Receive Date: 20130711
  Receipt Date: 20130806
  Transmission Date: 20140515
  Serious: No
  Sender: FDA-Public Use
  Company Number: US-VERTEX PHARMACEUTICALS INC-2013-007864

PATIENT
  Age: 54 Year
  Sex: Female
  Weight: 54 kg

DRUGS (3)
  1. VX-950 (TELAPREVIR) [Suspect]
     Indication: HEPATITIS C
     Dosage: 750 MG, TID
     Route: 048
     Dates: start: 20130623
  2. RIBASPHERE [Suspect]
     Indication: HEPATITIS C
     Dosage: 2 DF, BID
     Dates: start: 20130623
  3. PEGINTRON [Suspect]
     Indication: HEPATITIS C
     Dosage: 80 ?G, QW
     Route: 058
     Dates: start: 20130623

REACTIONS (7)
  - White blood cell count decreased [Unknown]
  - Influenza like illness [Recovered/Resolved]
  - Headache [Not Recovered/Not Resolved]
  - Malaise [Recovered/Resolved]
  - Fatigue [Not Recovered/Not Resolved]
  - Platelet count decreased [Unknown]
  - Nausea [Not Recovered/Not Resolved]
